FAERS Safety Report 10128733 (Version 1)
Quarter: 2014Q2

REPORT INFORMATION
  Report Type: Spontaneous
  Country: US (occurrence: None)
  Receive Date: 20140424
  Receipt Date: 20140424
  Transmission Date: 20141212
  Serious: Yes (Hospitalization)
  Sender: FDA-Public Use
  Company Number: None

PATIENT
  Age: 12 Year
  Sex: Female

DRUGS (13)
  1. PEGASPARAGINASE [Suspect]
     Indication: CHEMOTHERAPY
     Dates: start: 20140417, end: 20140417
  2. VINCRISTINE [Concomitant]
  3. TYLENOL [Concomitant]
  4. BENADRYL [Concomitant]
  5. HEPARIN FLUSH [Concomitant]
  6. COLACE [Concomitant]
  7. PREVACID [Concomitant]
  8. LEVAQUIN [Concomitant]
  9. MEGACE [Concomitant]
  10. SOLUMEDROL [Concomitant]
  11. ZOFRAN [Concomitant]
  12. MIRALAX [Concomitant]
  13. BACTRIM [Concomitant]

REACTIONS (2)
  - Cerebrovascular accident [None]
  - Thrombotic stroke [None]
